FAERS Safety Report 18919741 (Version 1)
Quarter: 2021Q1

REPORT INFORMATION
  Report Type: Report from Study
  Country: MA (occurrence: MA)
  Receive Date: 20210221
  Receipt Date: 20210221
  Transmission Date: 20210420
  Serious: Yes (Other)
  Sender: FDA-Public Use
  Company Number: MA-SUN PHARMACEUTICAL INDUSTRIES LTD-2021R1-280251

PATIENT
  Age: 11 Year
  Sex: Male

DRUGS (1)
  1. ACETYLSALICYLIC ACID [Suspect]
     Active Substance: ASPIRIN
     Indication: PRODUCT USED FOR UNKNOWN INDICATION
     Dosage: UNK,1 TABLET
     Route: 048
     Dates: start: 20130226, end: 20130226

REACTIONS (2)
  - Abdominal pain upper [Recovering/Resolving]
  - Haematemesis [Recovering/Resolving]
